FAERS Safety Report 12905482 (Version 5)
Quarter: 2017Q1

REPORT INFORMATION
  Report Type: Spontaneous
  Country: US (occurrence: US)
  Receive Date: 20161103
  Receipt Date: 20170313
  Transmission Date: 20170428
  Serious: Yes (Other)
  Sender: FDA-Public Use
  Company Number: US-B.I. PHARMACEUTICALS,INC./RIDGEFIELD-2016-BI-067945

PATIENT
  Age: 80 Year
  Sex: Female
  Weight: 78.47 kg

DRUGS (1)
  1. COMBIVENT [Suspect]
     Active Substance: ALBUTEROL SULFATE\IPRATROPIUM BROMIDE
     Indication: CHRONIC OBSTRUCTIVE PULMONARY DISEASE
     Dosage: STRENGTH AND UNIT DOSE: 20 MCG/100 MCG PER ACTUATION (4 GRAMS, 120 METERED DOSES); DAILY DOSE: 80MCG
     Route: 065

REACTIONS (3)
  - Carpal tunnel syndrome [Unknown]
  - Lung adenocarcinoma [Unknown]
  - Arthritis [Unknown]

NARRATIVE: CASE EVENT DATE: 201605
